FAERS Safety Report 8022935-3 (Version None)
Quarter: 2012Q1

REPORT INFORMATION
  Report Type: 
  Country: None (occurrence: None)
  Receive Date: 20120104
  Receipt Date: 20111228
  Transmission Date: 20120608
  Serious: Yes (Hospitalization)
  Sender: FDA-Public Use
  Company Number: PHHY2010US63840

PATIENT
  Sex: Female

DRUGS (3)
  1. GLEEVEC [Suspect]
     Dosage: 200 MG, PER DAY
     Route: 048
  2. GLEEVEC [Suspect]
     Indication: CHRONIC MYELOID LEUKAEMIA
     Dosage: 400 MG, QD
     Route: 048
     Dates: start: 20100908
  3. GLEEVEC [Suspect]
     Dosage: 300 MG, BID
     Route: 048

REACTIONS (4)
  - DIARRHOEA [None]
  - BLOOD GLUCOSE DECREASED [None]
  - DIABETIC COMA [None]
  - DEHYDRATION [None]
